FAERS Safety Report 11872961 (Version 3)
Quarter: 2016Q1

REPORT INFORMATION
  Report Type: Spontaneous
  Country: US (occurrence: US)
  Receive Date: 20151228
  Receipt Date: 20160329
  Transmission Date: 20160526
  Serious: No
  Sender: FDA-Public Use
  Company Number: US-PFIZER INC-2015462733

PATIENT
  Age: 43 Year
  Sex: Female
  Weight: 47.63 kg

DRUGS (5)
  1. LEXAPRO [Concomitant]
     Active Substance: ESCITALOPRAM OXALATE
     Indication: DEPRESSION
     Dosage: 20 MG, 1X/DAY
     Route: 048
     Dates: start: 201506
  2. CHANTIX [Suspect]
     Active Substance: VARENICLINE TARTRATE
     Dosage: ^10 MG^ TABLET ONCE A DAY
     Route: 048
     Dates: start: 20150813, end: 20150816
  3. CHANTIX [Suspect]
     Active Substance: VARENICLINE TARTRATE
     Dosage: ^10 MG^ IN THE MORNING AND ^10 MG^ AT NIGHT
     Route: 048
     Dates: start: 20150817, end: 20151108
  4. CHANTIX [Suspect]
     Active Substance: VARENICLINE TARTRATE
     Indication: SMOKING CESSATION THERAPY
     Dosage: ^5 MG^ TABLET ONCE A DAY
     Route: 048
     Dates: start: 20150808, end: 20150812
  5. VISTARIL [Concomitant]
     Active Substance: HYDROXYZINE PAMOATE
     Indication: ANXIETY
     Dosage: 50 MG, 3X/DAY
     Route: 048
     Dates: start: 201506

REACTIONS (7)
  - Malaise [Unknown]
  - Weight increased [Unknown]
  - Nausea [Not Recovered/Not Resolved]
  - Abdominal discomfort [Unknown]
  - Blood pressure increased [Unknown]
  - Condition aggravated [Unknown]
  - Anxiety [Unknown]

NARRATIVE: CASE EVENT DATE: 2015
